FAERS Safety Report 12944475 (Version 1)
Quarter: 2016Q4

REPORT INFORMATION
  Report Type: Spontaneous
  Country: US (occurrence: US)
  Receive Date: 20161115
  Receipt Date: 20161115
  Transmission Date: 20170207
  Serious: No
  Sender: FDA-Public Use
  Company Number: GXBR2016US001913

PATIENT
  Sex: Male

DRUGS (1)
  1. METRONIDAZOLE. [Suspect]
     Active Substance: METRONIDAZOLE
     Indication: ROSACEA
     Dosage: .75 %, UNK
     Route: 061

REACTIONS (3)
  - Rosacea [Not Recovered/Not Resolved]
  - Skin discomfort [Not Recovered/Not Resolved]
  - Expired product administered [Not Recovered/Not Resolved]
